FAERS Safety Report 5746752-X (Version None)
Quarter: 2008Q2

REPORT INFORMATION
  Report Type: 
  Country: None (occurrence: None)
  Receive Date: 20080522
  Receipt Date: 20080516
  Transmission Date: 20081010
  Serious: Yes (Hospitalization)
  Sender: FDA-Public Use
  Company Number: AU-WYE-G01543608

PATIENT
  Sex: Male

DRUGS (1)
  1. DIMETAPP 12 HOUR [Suspect]
     Indication: NASAL CONGESTION
     Dosage: 2-3 TIMES A DAY (500MCG/ML)
     Route: 045
     Dates: start: 20071101

REACTIONS (3)
  - DYSPNOEA [None]
  - IMMATURE RESPIRATORY SYSTEM [None]
  - PREMATURE BABY [None]
